FAERS Safety Report 14700994 (Version 1)
Quarter: 2018Q1

REPORT INFORMATION
  Report Type: Spontaneous
  Country: US (occurrence: US)
  Receive Date: 20180328
  Receipt Date: 20180328
  Transmission Date: 20180509
  Serious: No
  Sender: FDA-Public Use
  Company Number: None

PATIENT
  Age: 40 Year
  Sex: Male

DRUGS (1)
  1. MAVYRET [Suspect]
     Active Substance: GLECAPREVIR\PIBRENTASVIR

REACTIONS (4)
  - Bone pain [None]
  - Increased viscosity of upper respiratory secretion [None]
  - Diarrhoea [None]
  - Cold sweat [None]

NARRATIVE: CASE EVENT DATE: 20180327
